FAERS Safety Report 18404895 (Version 1)
Quarter: 2020Q4

REPORT INFORMATION
  Report Type: Spontaneous
  Country: US (occurrence: US)
  Receive Date: 20201020
  Receipt Date: 20201020
  Transmission Date: 20210114
  Serious: No
  Sender: FDA-Public Use
  Company Number: None

PATIENT
  Age: 26 Year
  Sex: Female
  Weight: 99 kg

DRUGS (2)
  1. CREST PRO-HEALTH (CETYLPYRIDINIUM CHLORIDE) [Suspect]
     Active Substance: CETYLPYRIDINIUM CHLORIDE
     Indication: DENTAL DISORDER PROPHYLAXIS
     Dates: start: 20201018, end: 20201020
  2. KYLEENA [Concomitant]
     Active Substance: LEVONORGESTREL

REACTIONS (4)
  - Swollen tongue [None]
  - Tongue erythema [None]
  - Ageusia [None]
  - Feeding disorder [None]

NARRATIVE: CASE EVENT DATE: 20201018
